FAERS Safety Report 5247577-4 (Version None)
Quarter: 2007Q1

REPORT INFORMATION
  Report Type: 
  Country: None (occurrence: None)
  Receive Date: 20070220
  Receipt Date: 20070207
  Transmission Date: 20070707
  Serious: Yes (Hospitalization)
  Sender: FDA-Public Use
  Company Number: 235511

PATIENT
  Age: 73 Year
  Sex: Male

DRUGS (14)
  1. AVASTIN [Suspect]
     Indication: COLORECTAL CANCER
     Dosage: 650 MG, QOW, INTRAVENOUS
     Route: 042
     Dates: start: 20070118
  2. OXALIPLATIN [Concomitant]
  3. LEUCOVORIN CALCIUM [Concomitant]
  4. FLUOROURACIL [Concomitant]
  5. ZOFRAN [Concomitant]
  6. DECADRON [Concomitant]
  7. LISINOPRIL [Concomitant]
  8. POTASSIUM (POTASSIUM NOS) [Concomitant]
  9. ALBUTEROL INHALER (ALBUTEROL/ALBUTEROL SULFATE) [Concomitant]
  10. LASIX [Concomitant]
  11. ELAVIL [Concomitant]
  12. NORVASC [Concomitant]
  13. METFORMIN HCL (METFORMIN) [Concomitant]
  14. METOPROLOL TARTRATE [Concomitant]

REACTIONS (5)
  - CERVICAL SPINAL STENOSIS [None]
  - CONFUSIONAL STATE [None]
  - MEMORY IMPAIRMENT [None]
  - PARKINSONISM [None]
  - SUBDURAL HAEMATOMA [None]
